FAERS Safety Report 15535901 (Version 1)
Quarter: 2018Q4

REPORT INFORMATION
  Report Type: Spontaneous
  Country: US (occurrence: US)
  Receive Date: 20181021
  Receipt Date: 20181021
  Transmission Date: 20190205
  Serious: Yes (Life-Threatening, Hospitalization)
  Sender: FDA-Public Use
  Company Number: None

PATIENT
  Age: 66 Year
  Sex: Female
  Weight: 96.75 kg

DRUGS (5)
  1. TANZEUM [Suspect]
     Active Substance: ALBIGLUTIDE
     Indication: DIABETES MELLITUS
     Route: 058
     Dates: start: 20170620, end: 20170621
  2. VALSARTAN. [Concomitant]
     Active Substance: VALSARTAN
  3. NOVOLOG [Concomitant]
     Active Substance: INSULIN ASPART
  4. LEVIMIER [Concomitant]
  5. GLUCAPHOG [Concomitant]

REACTIONS (2)
  - Necrosis [None]
  - Penis disorder [None]

NARRATIVE: CASE EVENT DATE: 20170930
